FAERS Safety Report 4634908-9 (Version None)
Quarter: 2005Q2

REPORT INFORMATION
  Report Type: 
  Country: None (occurrence: None)
  Receive Date: 20050412
  Receipt Date: 20050328
  Transmission Date: 20051028
  Serious: Yes (Hospitalization)
  Sender: FDA-Public Use
  Company Number: 2005-0008141

PATIENT
  Age: 18 Year
  Sex: Female
  Weight: 52.8894 kg

DRUGS (1)
  1. HEPSERA [Suspect]
     Dosage: 10 MG, 1 IN 1 D, ORAL
     Route: 048
     Dates: start: 20050302, end: 20050308

REACTIONS (7)
  - ANAPHYLACTIC REACTION [None]
  - HAEMATOCRIT DECREASED [None]
  - PHARYNGEAL ERYTHEMA [None]
  - PRURITUS [None]
  - RASH [None]
  - URTICARIA [None]
  - WHITE BLOOD CELL COUNT DECREASED [None]
